FAERS Safety Report 21812863 (Version 1)
Quarter: 2023Q1

REPORT INFORMATION
  Report Type: Report from Study
  Country: US (occurrence: US)
  Receive Date: 20230103
  Receipt Date: 20230103
  Transmission Date: 20230417
  Serious: Yes (Other)
  Sender: FDA-Public Use
  Company Number: US-ABBVIE-4255773

PATIENT
  Age: 41 Year
  Sex: Female

DRUGS (1)
  1. HUMIRA [Suspect]
     Active Substance: ADALIMUMAB
     Indication: Rheumatoid arthritis
     Route: 058
     Dates: start: 20151002

REACTIONS (3)
  - Venous operation [Recovering/Resolving]
  - Pain in extremity [Unknown]
  - Venous operation [Recovering/Resolving]

NARRATIVE: CASE EVENT DATE: 20221215
